FAERS Safety Report 20709814 (Version 1)
Quarter: 2022Q2

REPORT INFORMATION
  Report Type: Spontaneous
  Country: US (occurrence: None)
  Receive Date: 20220413
  Receipt Date: 20220413
  Transmission Date: 20220721
  Serious: Yes (Disabling)
  Sender: FDA-Public Use
  Company Number: None

PATIENT
  Age: 41 Year
  Sex: Female
  Weight: 85.5 kg

DRUGS (7)
  1. ROSUVASTATIN [Suspect]
     Active Substance: ROSUVASTATIN
     Indication: High density lipoprotein increased
     Dosage: QUANTITY: 90 CAPSULES
     Route: 048
     Dates: start: 20220324, end: 20220409
  2. LEVEMIR [Concomitant]
     Active Substance: INSULIN DETEMIR
  3. INSULIN LISPRO [Concomitant]
     Active Substance: INSULIN LISPRO
  4. LEVOTHYROXINE [Concomitant]
     Active Substance: LEVOTHYROXINE
  5. METFORMIN [Concomitant]
  6. ASPIRIN [Concomitant]
     Active Substance: ASPIRIN
  7. METAMUCIL [Concomitant]
     Active Substance: PLANTAGO SEED

REACTIONS (3)
  - Pain in extremity [None]
  - Pain in extremity [None]
  - Gait disturbance [None]

NARRATIVE: CASE EVENT DATE: 20220324
